FAERS Safety Report 5325810-8 (Version None)
Quarter: 2007Q2

REPORT INFORMATION
  Report Type: 
  Country: None (occurrence: None)
  Receive Date: 20070510
  Receipt Date: 20070430
  Transmission Date: 20071010
  Serious: Yes (Death, Hospitalization)
  Sender: FDA-Public Use
  Company Number: 2007SP008261

PATIENT
  Age: 71 Year
  Sex: Male
  Weight: 80 kg

DRUGS (7)
  1. POSACONAZOLE [Suspect]
     Indication: ANTIFUNGAL PROPHYLAXIS
     Dosage: QD
     Dates: start: 20070404, end: 20070424
  2. CYTARABINE [Concomitant]
  3. DAUNORUBICIN HCL [Concomitant]
  4. PRIMAXIN [Concomitant]
  5. VANCOMYCIN [Concomitant]
  6. TAZOBAC [Concomitant]
  7. GENTAMICIN [Concomitant]

REACTIONS (2)
  - BACTERIAL SEPSIS [None]
  - PYREXIA [None]
